FAERS Safety Report 25069653 (Version 1)
Quarter: 2025Q1

REPORT INFORMATION
  Report Type: Spontaneous
  Country: FR (occurrence: FR)
  Receive Date: 20250312
  Receipt Date: 20250312
  Transmission Date: 20250408
  Serious: Yes (Other)
  Sender: MYLAN
  Company Number: None

PATIENT
  Age: 38 Year
  Sex: Female
  Weight: 70 kg

DRUGS (4)
  1. INSPRA [Suspect]
     Active Substance: EPLERENONE
     Indication: Cardiomyopathy
     Dosage: 1 DOSAGE FORM, QD
     Dates: start: 20230606, end: 20231121
  2. DESOGESTREL [Suspect]
     Active Substance: DESOGESTREL
     Indication: Contraception
     Dosage: 1 DOSAGE FORM, QD
     Dates: start: 202303, end: 202311
  3. ENTRESTO [Suspect]
     Active Substance: SACUBITRIL\VALSARTAN
     Indication: Cardiomyopathy
     Dosage: 2 DOSAGE FORM, QD (1 MORNING, 1 EVENING)
     Dates: start: 20230516, end: 20231121
  4. DAPAGLIFLOZIN [Suspect]
     Active Substance: DAPAGLIFLOZIN
     Indication: Cardiomyopathy
     Dosage: 1 DOSAGE FORM, QD
     Dates: start: 20230613, end: 20231121

REACTIONS (3)
  - Contraindicated product administered [Recovered/Resolved]
  - Drug ineffective [Recovered/Resolved]
  - Pregnancy on contraceptive [Recovered/Resolved]

NARRATIVE: CASE EVENT DATE: 20230817
